FAERS Safety Report 5750141-1 (Version None)
Quarter: 2008Q2

REPORT INFORMATION
  Report Type: 
  Country: None (occurrence: None)
  Receive Date: 20080522
  Receipt Date: 20080522
  Transmission Date: 20081010
  Serious: Yes (Life-Threatening, Hospitalization)
  Sender: FDA-Public Use
  Company Number: None

PATIENT
  Age: 84 Year
  Sex: Male

DRUGS (2)
  1. FERRIC NA GLUCONATE [Suspect]
     Indication: ANAEMIA
     Dosage: 500 MG  IV
     Route: 042
     Dates: start: 20080114, end: 20080114
  2. FERRIC NA GLUCONATE [Suspect]
     Indication: ATRIAL FIBRILLATION
     Dosage: 500 MG  IV
     Route: 042
     Dates: start: 20080114, end: 20080114

REACTIONS (9)
  - ANAPHYLACTIC REACTION [None]
  - CARDIO-RESPIRATORY ARREST [None]
  - COUGH [None]
  - EYE ROLLING [None]
  - HEADACHE [None]
  - HYPOTENSION [None]
  - LOSS OF CONSCIOUSNESS [None]
  - SKIN BURNING SENSATION [None]
  - SYNCOPE [None]
